FAERS Safety Report 23329278 (Version 2)
Quarter: 2024Q1

REPORT INFORMATION
  Report Type: Spontaneous
  Country: US (occurrence: US)
  Receive Date: 20231222
  Receipt Date: 20240208
  Transmission Date: 20240409
  Serious: Yes (Hospitalization)
  Sender: FDA-Public Use
  Company Number: US-JNJFOC-20231240963

PATIENT
  Age: 43 Year
  Sex: Female
  Weight: 63.56 kg

DRUGS (7)
  1. SPRAVATO [Suspect]
     Active Substance: ESKETAMINE
     Indication: Depression
     Dosage: ^56 MG, 1 TOTAL DOSE^
     Dates: start: 20230717, end: 20230717
  2. SPRAVATO [Suspect]
     Active Substance: ESKETAMINE
     Indication: Major depression
     Dosage: ^84 MG, 18 TOTAL DOSES^
     Dates: start: 20230720, end: 20231201
  3. SPRAVATO [Suspect]
     Active Substance: ESKETAMINE
     Dosage: ^84 MG, 1 TOTAL DOSE^
     Dates: start: 20231208, end: 20231208
  4. LAMICTAL [Concomitant]
     Active Substance: LAMOTRIGINE
     Indication: Bipolar disorder
     Route: 048
     Dates: start: 20231106
  5. PROZAC [Concomitant]
     Active Substance: FLUOXETINE HYDROCHLORIDE
     Indication: Depression
     Route: 048
     Dates: start: 20230612
  6. HYDROXYZINE [Concomitant]
     Active Substance: HYDROXYZINE HYDROCHLORIDE
     Indication: Anxiety
     Dosage: 1-2
     Route: 048
     Dates: start: 20231204
  7. SPIRONOLACTONE [Concomitant]
     Active Substance: SPIRONOLACTONE
     Indication: Alopecia
     Dosage: PATIENT REPORTED MEDICATION
     Route: 048

REACTIONS (4)
  - Suicidal ideation [Unknown]
  - Panic attack [Unknown]
  - Dissociation [Unknown]
  - Drug screen positive [Unknown]

NARRATIVE: CASE EVENT DATE: 20231208
